FAERS Safety Report 4497162-7 (Version None)
Quarter: 2004Q4

REPORT INFORMATION
  Report Type: 
  Country: None (occurrence: None)
  Receive Date: 20041110
  Receipt Date: 20041021
  Transmission Date: 20050328
  Serious: Yes (Hospitalization)
  Sender: FDA-Public Use
  Company Number: PHRM2004FR03177

PATIENT
  Age: 54 Year
  Sex: Female

DRUGS (1)
  1. VOLTAREN [Suspect]
     Dosage: 1 DF, ONCE/SINGLE
     Route: 048
     Dates: start: 20030101

REACTIONS (11)
  - ABNORMAL CHEST SOUND [None]
  - ANAPHYLACTOID SHOCK [None]
  - ASTHENIA [None]
  - ATRIAL FIBRILLATION [None]
  - BLOOD PRESSURE DECREASED [None]
  - DYSPHONIA [None]
  - DYSPNOEA [None]
  - FEELING HOT [None]
  - MALAISE [None]
  - PALMAR ERYTHEMA [None]
  - PRURITUS [None]
